FAERS Safety Report 9639182 (Version 6)
Quarter: 2014Q1

REPORT INFORMATION
  Report Type: Report from Study
  Country: US (occurrence: US)
  Receive Date: 20131022
  Receipt Date: 20140203
  Transmission Date: 20141002
  Serious: Yes (Hospitalization, Other)
  Sender: FDA-Public Use
  Company Number: US-US-EMD SERONO, INC.-7242668

PATIENT
  Age: 58 Year
  Sex: Female
  Weight: 108 kg

DRUGS (4)
  1. REBIF [Suspect]
     Indication: MULTIPLE SCLEROSIS
     Route: 058
     Dates: start: 20130709
  2. NORTRIPTYLINE [Concomitant]
     Indication: HEADACHE
     Route: 048
     Dates: start: 201304
  3. GABAPENTIN [Concomitant]
     Indication: RADICULAR PAIN
     Route: 048
     Dates: start: 201304
  4. IBUPROFEN [Concomitant]
     Indication: PRODUCT USED FOR UNKNOWN INDICATION

REACTIONS (16)
  - Osteoarthritis [Recovering/Resolving]
  - Lower respiratory tract infection [Recovering/Resolving]
  - Pyrexia [Unknown]
  - Hypovitaminosis [Unknown]
  - Feeling abnormal [Not Recovered/Not Resolved]
  - Nasopharyngitis [Recovering/Resolving]
  - Decreased appetite [Not Recovered/Not Resolved]
  - Dizziness [Not Recovered/Not Resolved]
  - Depression postoperative [Recovered/Resolved]
  - Frustration [Not Recovered/Not Resolved]
  - Influenza [Recovered/Resolved]
  - Fall [Recovered/Resolved]
  - Multiple sclerosis [Not Recovered/Not Resolved]
  - Fatigue [Not Recovered/Not Resolved]
  - Injection site erythema [Not Recovered/Not Resolved]
  - Injection site pain [Not Recovered/Not Resolved]
